FAERS Safety Report 8399149-0 (Version None)
Quarter: 2012Q2

REPORT INFORMATION
  Report Type: 
  Country: None (occurrence: None)
  Receive Date: 20120531
  Receipt Date: 20120402
  Transmission Date: 20120825
  Serious: Yes (Other)
  Sender: FDA-Public Use
  Company Number: ES-BAYER-2012-052243

PATIENT
  Age: 74 Year
  Sex: Female

DRUGS (13)
  1. BETADINE [Concomitant]
  2. OFTALAR [Concomitant]
  3. TOBRADEX [Concomitant]
  4. LIQUIFILM [Concomitant]
  5. VANCOMICINA [Concomitant]
  6. CEFTAZIDIME [Concomitant]
  7. MOXIFLOXACIN [Suspect]
     Dosage: UNK
     Route: 031
     Dates: start: 20120222, end: 20120222
  8. TROPICAMIDE [Concomitant]
  9. AMIKACIN SULFATE [Concomitant]
  10. BSS [Concomitant]
  11. VISCOAT [Concomitant]
  12. LIDOCAINA [Concomitant]
  13. BUPIVACAINA [Concomitant]

REACTIONS (5)
  - ANTERIOR CHAMBER FIBRIN [None]
  - CORNEAL OEDEMA [None]
  - HYPOPYON [None]
  - VITRITIS [None]
  - ENDOPHTHALMITIS [None]
